FAERS Safety Report 10785323 (Version 2)
Quarter: 2015Q1

REPORT INFORMATION
  Report Type: Spontaneous
  Country: US (occurrence: None)
  Receive Date: 20150209
  Receipt Date: 20150302
  Transmission Date: 20150721
  Serious: No
  Sender: FDA-Public Use
  Company Number: 2015-00017

PATIENT
  Age: 56 Year
  Sex: Female
  Weight: 53.07 kg

DRUGS (1)
  1. ZICAM COLD REMEDY [Suspect]
     Active Substance: ZINC ACETATE\ZINC GLUCONATE
     Indication: NASOPHARYNGITIS
     Dosage: SPRAYED ORALLY X NOS
     Dates: start: 20150128, end: 20150129

REACTIONS (2)
  - Ageusia [None]
  - Dysgeusia [None]

NARRATIVE: CASE EVENT DATE: 20150128
